FAERS Safety Report 24985287 (Version 1)
Quarter: 2025Q1

REPORT INFORMATION
  Report Type: Spontaneous
  Country: US (occurrence: None)
  Receive Date: 20250218
  Receipt Date: 20250218
  Transmission Date: 20250409
  Serious: Yes (Hospitalization)
  Sender: FDA-CTU
  Company Number: None

PATIENT
  Sex: Female

DRUGS (3)
  1. OPSUMIT [Suspect]
     Active Substance: MACITENTAN
     Indication: Pulmonary arterial hypertension
     Dosage: FREQUENCY : DAILY;?
     Route: 048
     Dates: start: 202312
  2. REMODULIN [Suspect]
     Active Substance: TREPROSTINIL
  3. CFEV [Concomitant]

REACTIONS (6)
  - Viral infection [None]
  - Diarrhoea [None]
  - Dehydration [None]
  - Dizziness [None]
  - Weight increased [None]
  - Dyspnoea [None]
